FAERS Safety Report 4270167-7 (Version None)
Quarter: 2004Q1

REPORT INFORMATION
  Report Type: 
  Country: None (occurrence: None)
  Receive Date: 20040114
  Receipt Date: 20030619
  Transmission Date: 20041129
  Serious: No
  Sender: FDA-Public Use
  Company Number: US-GLAXOSMITHKLINE-A0413293A

PATIENT
  Sex: Female

DRUGS (2)
  1. WELLBUTRIN [Suspect]
     Indication: EATING DISORDER
     Dosage: 200MG UNKNOWN
     Route: 048
  2. ZOCOR [Concomitant]

REACTIONS (1)
  - HEADACHE [None]
